FAERS Safety Report 5554032-0 (Version None)
Quarter: 2007Q4

REPORT INFORMATION
  Report Type: 
  Country: None (occurrence: None)
  Receive Date: 20071213
  Receipt Date: 20070808
  Transmission Date: 20080405
  Serious: No
  Sender: FDA-Public Use
  Company Number: A0645232A

PATIENT
  Age: 40 Year
  Sex: Female

DRUGS (11)
  1. LEXIVA [Suspect]
     Indication: HIV INFECTION
     Dosage: 1400MG PER DAY
     Route: 048
     Dates: start: 20070301
  2. GLUCOTROL XL [Concomitant]
  3. ATACAND HCT [Concomitant]
  4. TOPROL-XL [Concomitant]
  5. GLUCOPHAGE XR [Concomitant]
  6. NORVASC [Concomitant]
  7. ZYRTEC [Concomitant]
  8. BACTRIM DS [Concomitant]
  9. VIREAD [Concomitant]
  10. COMBIVIR [Concomitant]
  11. NORVIR [Concomitant]

REACTIONS (2)
  - MEDICATION RESIDUE [None]
  - PHARMACEUTICAL PRODUCT COMPLAINT [None]
